FAERS Safety Report 6599304-6 (Version None)
Quarter: 2010Q1

REPORT INFORMATION
  Report Type: 
  Country: None (occurrence: None)
  Receive Date: 20100217
  Receipt Date: 20100201
  Transmission Date: 20100710
  Serious: Yes (Hospitalization)
  Sender: FDA-Public Use
  Company Number: 006060

PATIENT
  Sex: Female

DRUGS (2)
  1. VIMPAT [Suspect]
     Dosage: (300 MG, )
  2. VALPROIC ACID [Concomitant]

REACTIONS (2)
  - NO THERAPEUTIC RESPONSE [None]
  - STATUS EPILEPTICUS [None]
